FAERS Safety Report 10183462 (Version 1)
Quarter: 2014Q2

REPORT INFORMATION
  Report Type: Spontaneous
  Country: US (occurrence: US)
  Receive Date: 20140520
  Receipt Date: 20140520
  Transmission Date: 20141212
  Serious: Yes (Hospitalization, Other)
  Sender: FDA-Public Use
  Company Number: US-GILEAD-2014-0102832

PATIENT
  Age: 54 Year
  Sex: Female

DRUGS (3)
  1. SOVALDI [Suspect]
     Indication: PRODUCT USED FOR UNKNOWN INDICATION
     Dosage: 400 MG, UNK
     Route: 048
     Dates: start: 20140430, end: 201405
  2. SOVALDI [Suspect]
     Dosage: 400 UNK, UNK
     Route: 065
     Dates: start: 201405
  3. RIBAVIRIN [Concomitant]
     Indication: PRODUCT USED FOR UNKNOWN INDICATION
     Dosage: UNK
     Route: 048
     Dates: start: 20140430

REACTIONS (3)
  - Hepatic encephalopathy [Recovered/Resolved]
  - Confusional state [Unknown]
  - Off label use [Unknown]
